FAERS Safety Report 17432316 (Version 3)
Quarter: 2020Q3

REPORT INFORMATION
  Report Type: Spontaneous
  Country: US (occurrence: US)
  Receive Date: 20200218
  Receipt Date: 20200914
  Transmission Date: 20201102
  Serious: Yes (Hospitalization, Other)
  Sender: FDA-Public Use
  Company Number: US-SA-2020SA042231

PATIENT

DRUGS (1)
  1. KEVZARA [Suspect]
     Active Substance: SARILUMAB
     Indication: RHEUMATOID ARTHRITIS
     Dosage: 200 MG, QOW
     Route: 058
     Dates: start: 20190701, end: 202003

REACTIONS (7)
  - Illness [Unknown]
  - Bone graft [Unknown]
  - Intentional dose omission [Unknown]
  - Viral infection [Unknown]
  - Graft infection [Unknown]
  - Fungal infection [Unknown]
  - Tooth extraction [Unknown]

NARRATIVE: CASE EVENT DATE: 201912
